FAERS Safety Report 8547264-0 (Version None)
Quarter: 2012Q3

REPORT INFORMATION
  Report Type: 
  Country: None (occurrence: None)
  Receive Date: 20120727
  Receipt Date: 20120128
  Transmission Date: 20120928
  Serious: Yes (Hospitalization, Other)
  Sender: FDA-Public Use
  Company Number: CHPA2012US013222

PATIENT
  Sex: Female

DRUGS (1)
  1. EXCEDRIN EXTRA STRENGTH TABLETS [Suspect]
     Indication: SINUS HEADACHE
     Dosage: UNK, PRN, FOR SEVERAL YEARS
     Route: 048

REACTIONS (3)
  - LOSS OF CONSCIOUSNESS [None]
  - FALL [None]
  - DRUG HYPERSENSITIVITY [None]
